FAERS Safety Report 25601931 (Version 1)
Quarter: 2025Q3

REPORT INFORMATION
  Report Type: Spontaneous
  Country: US (occurrence: US)
  Receive Date: 20250724
  Receipt Date: 20250724
  Transmission Date: 20251021
  Serious: No
  Sender: Harrow Health
  Company Number: US-IMP-2024000895

PATIENT

DRUGS (1)
  1. ZERVIATE [Suspect]
     Active Substance: CETIRIZINE HYDROCHLORIDE

REACTIONS (1)
  - Keratitis [Unknown]
